FAERS Safety Report 18108949 (Version 2)
Quarter: 2020Q3

REPORT INFORMATION
  Report Type: Spontaneous
  Country: US (occurrence: US)
  Receive Date: 20200804
  Receipt Date: 20200826
  Transmission Date: 20201103
  Serious: No
  Sender: FDA-Public Use
  Company Number: US-PFIZER INC-2020290943

PATIENT
  Age: 51 Year
  Sex: Female

DRUGS (1)
  1. DUAVEE [Suspect]
     Active Substance: BAZEDOXIFENE ACETATE\ESTROGENS, CONJUGATED
     Indication: BREAST DISORDER
     Dosage: UNK (0.45MG/20MG)

REACTIONS (4)
  - Recalled product administered [Unknown]
  - Off label use [Unknown]
  - Stress [Unknown]
  - Product use in unapproved indication [Unknown]
